FAERS Safety Report 4745456-X (Version None)
Quarter: 2005Q3

REPORT INFORMATION
  Report Type: 
  Country: None (occurrence: None)
  Receive Date: 20050812
  Receipt Date: 20050808
  Transmission Date: 20060218
  Serious: Yes (Hospitalization)
  Sender: FDA-Public Use
  Company Number: 2005112370

PATIENT
  Age: 44 Year
  Sex: Male

DRUGS (4)
  1. XANAX [Suspect]
     Indication: ILL-DEFINED DISORDER
  2. PEGASYS [Suspect]
     Indication: ILL-DEFINED DISORDER
  3. ALL OTHER THERAPEUTIC PRODUCTS (ALL OTHER THERAPEUTIC PRODUCTS) [Suspect]
     Indication: ILL-DEFINED DISORDER
  4. ALCOHOL (ETHANOL) [Suspect]
     Indication: ILL-DEFINED DISORDER

REACTIONS (2)
  - MULTIPLE DRUG OVERDOSE [None]
  - SUICIDAL IDEATION [None]
